FAERS Safety Report 4998345-X (Version None)
Quarter: 2006Q2

REPORT INFORMATION
  Report Type: 
  Country: None (occurrence: None)
  Receive Date: 20060510
  Receipt Date: 20060423
  Transmission Date: 20061013
  Serious: Yes (Death)
  Sender: FDA-Public Use
  Company Number: US-SANOFI-SYNTHELABO-A03200602595

PATIENT
  Age: 86 Year
  Sex: Male
  Weight: 54.4 kg

DRUGS (9)
  1. AMBIEN [Suspect]
     Indication: INSOMNIA
     Dosage: UNK
     Route: 048
  2. AMBIEN [Suspect]
     Route: 048
  3. ZOLOFT [Concomitant]
     Route: 048
  4. ACTIGALL [Concomitant]
     Dosage: UNK
     Route: 048
  5. PROSCAR [Concomitant]
     Dosage: UNK
     Route: 048
  6. NORVASC [Concomitant]
     Dosage: UNK
     Route: 048
  7. ASPIRIN [Concomitant]
     Dosage: UNK
     Route: 048
  8. K-DUR 10 [Concomitant]
     Dosage: UNK
     Route: 048
  9. DIURETIC [Concomitant]
     Dosage: UNK
     Route: 048

REACTIONS (14)
  - ACUTE RESPIRATORY DISTRESS SYNDROME [None]
  - COLD SWEAT [None]
  - CONFUSIONAL STATE [None]
  - DEPRESSED LEVEL OF CONSCIOUSNESS [None]
  - DIZZINESS [None]
  - DRUG INEFFECTIVE [None]
  - EATING DISORDER [None]
  - FALL [None]
  - FEELING COLD [None]
  - MULTI-ORGAN FAILURE [None]
  - OXYGEN SATURATION DECREASED [None]
  - PNEUMONIA ASPIRATION [None]
  - SLEEP WALKING [None]
  - SWELLING [None]
